FAERS Safety Report 10515739 (Version 3)
Quarter: 2015Q2

REPORT INFORMATION
  Report Type: Spontaneous
  Country: US (occurrence: US)
  Receive Date: 20141014
  Receipt Date: 20150422
  Transmission Date: 20150821
  Serious: Yes (Hospitalization, Other)
  Sender: FDA-Public Use
  Company Number: US-PFIZER INC-2014280028

PATIENT
  Age: 68 Year
  Sex: Male
  Weight: 92 kg

DRUGS (9)
  1. VIAGRA [Suspect]
     Active Substance: SILDENAFIL CITRATE
     Indication: ERECTILE DYSFUNCTION
     Dosage: 100 MG, UNK
     Route: 048
     Dates: start: 1996
  2. STENDRA [Suspect]
     Active Substance: AVANAFIL
     Dosage: 100 MG, UNK
  3. CARISOPRODOL. [Concomitant]
     Active Substance: CARISOPRODOL
     Dosage: 350 MG, AS NEEDED
  4. ALPRAZOLAM. [Concomitant]
     Active Substance: ALPRAZOLAM
     Dosage: 0.5 MG, AS NEEDED
  5. RANITIDE [Concomitant]
     Dosage: 300 MG, 1X/DAY
  6. EDARBYCLOR [Concomitant]
     Active Substance: AZILSARTAN KAMEDOXOMIL\CHLORTHALIDONE
     Indication: BLOOD PRESSURE
     Dosage: AZILSARTAN MEDOXOMIL 40MG/ CHLORTHALIDONE 25 MG
     Route: 048
  7. DEXILANT [Concomitant]
     Active Substance: DEXLANSOPRAZOLE
     Dosage: 100 MG, 1X/DAY
  8. CRESTOR [Concomitant]
     Active Substance: ROSUVASTATIN CALCIUM
     Indication: BLOOD CHOLESTEROL
     Dosage: 10 MG, 1X/DAY
     Route: 048
  9. ALBUTEROL SULFATE. [Concomitant]
     Active Substance: ALBUTEROL SULFATE
     Dosage: 0.083 % 2.5 MG/ 3 L

REACTIONS (28)
  - Eye irritation [Unknown]
  - Weight fluctuation [Not Recovered/Not Resolved]
  - Urine flow decreased [Unknown]
  - Vision blurred [Not Recovered/Not Resolved]
  - Myalgia [Not Recovered/Not Resolved]
  - Dizziness [Not Recovered/Not Resolved]
  - Muscular weakness [Not Recovered/Not Resolved]
  - Skin discolouration [Not Recovered/Not Resolved]
  - Rash erythematous [Recovered/Resolved]
  - Prostatic disorder [Unknown]
  - Foreign body sensation in eyes [Not Recovered/Not Resolved]
  - Dyspnoea [Not Recovered/Not Resolved]
  - Hearing impaired [Not Recovered/Not Resolved]
  - Cardiac flutter [Not Recovered/Not Resolved]
  - Eye allergy [Not Recovered/Not Resolved]
  - Oropharyngeal pain [Recovering/Resolving]
  - Tremor [Not Recovered/Not Resolved]
  - Ocular hyperaemia [Not Recovered/Not Resolved]
  - Hepatomegaly [Recovered/Resolved]
  - Angina pectoris [Unknown]
  - Dysphonia [Recovering/Resolving]
  - Oesophageal irritation [Not Recovered/Not Resolved]
  - Gastrointestinal sounds abnormal [Not Recovered/Not Resolved]
  - Pharyngeal erythema [Recovering/Resolving]
  - Eye discharge [Not Recovered/Not Resolved]
  - Haemorrhoidal haemorrhage [Recovering/Resolving]
  - Gastrointestinal disorder [Not Recovered/Not Resolved]
  - Oesophageal discomfort [Not Recovered/Not Resolved]

NARRATIVE: CASE EVENT DATE: 2011
